FAERS Safety Report 21492785 (Version 1)
Quarter: 2022Q4

REPORT INFORMATION
  Report Type: Spontaneous
  Country: US (occurrence: None)
  Receive Date: 20221020
  Receipt Date: 20221020
  Transmission Date: 20230112
  Serious: Yes (Hospitalization)
  Sender: FDA-Public Use
  Company Number: None

PATIENT
  Age: 29 Year
  Sex: Female

DRUGS (1)
  1. HUMIRA [Suspect]
     Active Substance: ADALIMUMAB
     Indication: Rheumatoid arthritis
     Dosage: FREQUENCY : WEEKLY;?
     Route: 058

REACTIONS (9)
  - Pain [None]
  - Joint stiffness [None]
  - Clostridium difficile infection [None]
  - Crohn^s disease [None]
  - Candida infection [None]
  - Anxiety [None]
  - Depression [None]
  - COVID-19 [None]
  - Therapy interrupted [None]
